FAERS Safety Report 6982319-3 (Version None)
Quarter: 2010Q3

REPORT INFORMATION
  Report Type: 
  Country: None (occurrence: None)
  Receive Date: 20100914
  Receipt Date: 20091223
  Transmission Date: 20110219
  Serious: No
  Sender: FDA-Public Use
  Company Number: US-PFIZER INC-2009315326

PATIENT
  Sex: Female
  Weight: 75 kg

DRUGS (5)
  1. LYRICA [Suspect]
     Indication: SPINAL COLUMN STENOSIS
     Dosage: 50 MG, 2X/DAY
     Dates: start: 20091101, end: 20091223
  2. LYRICA [Suspect]
     Indication: BURNING SENSATION
  3. LYRICA [Suspect]
     Indication: HYPOAESTHESIA
  4. NAPROXEN [Concomitant]
     Dosage: 500 MG, 2X/DAY
  5. TRAMADOL [Concomitant]
     Indication: PAIN
     Dosage: UNK

REACTIONS (6)
  - BURNING SENSATION [None]
  - HYPOAESTHESIA [None]
  - JOINT SWELLING [None]
  - OEDEMA PERIPHERAL [None]
  - PAIN [None]
  - URINARY TRACT PAIN [None]
